FAERS Safety Report 21423527 (Version 2)
Quarter: 2023Q1

REPORT INFORMATION
  Report Type: Spontaneous
  Country: US (occurrence: US)
  Receive Date: 20221007
  Receipt Date: 20230105
  Transmission Date: 20230417
  Serious: No
  Sender: FDA-Public Use
  Company Number: US-HERON THERAPEUTICS, INC-HRTX-2022-000848

PATIENT
  Age: 63 Year
  Sex: Male

DRUGS (2)
  1. ZYNRELEF [Suspect]
     Active Substance: BUPIVACAINE\MELOXICAM
     Indication: Postoperative analgesia
     Dosage: 400 MG-12 MG/14 ML, SINGLE
     Dates: start: 20220822, end: 20220822
  2. ASPIRIN [Concomitant]
     Active Substance: ASPIRIN
     Indication: Thrombosis prophylaxis
     Dosage: 325 MILLIGRAM, BID
     Dates: start: 20220823

REACTIONS (6)
  - Post procedural drainage [Recovered/Resolved]
  - Fluctuance [Recovered/Resolved]
  - Oedema peripheral [Recovered/Resolved]
  - Skin abrasion [Recovered/Resolved]
  - Subcutaneous haematoma [Recovered/Resolved]
  - Gait disturbance [Recovered/Resolved]

NARRATIVE: CASE EVENT DATE: 20220829
